FAERS Safety Report 5455324-6 (Version None)
Quarter: 2007Q3

REPORT INFORMATION
  Report Type: 
  Country: None (occurrence: None)
  Receive Date: 20070913
  Receipt Date: 20070913
  Transmission Date: 20080115
  Serious: Yes (Hospitalization)
  Sender: FDA-Public Use
  Company Number: None

PATIENT
  Age: 65 Year
  Sex: Female

DRUGS (12)
  1. TARCEVA [Suspect]
     Indication: BREAST CANCER
     Dosage: 150 MG, P.O. DAILY
     Route: 048
     Dates: start: 20070718, end: 20070910
  2. LETROLE [Concomitant]
  3. LEVOTHYROXINE SODIUM [Concomitant]
  4. SYNTHROID [Concomitant]
  5. DOXAZOSIN [Concomitant]
  6. CARDURA [Concomitant]
  7. LOPERAMIDE HCL [Concomitant]
  8. IMODIUM [Concomitant]
  9. ACCUPRIL [Concomitant]
  10. TRAMTURINE/HCTZ [Concomitant]
  11. ASPIRIN [Concomitant]
  12. CA+ SUPPLEMENT [Concomitant]

REACTIONS (4)
  - DIARRHOEA [None]
  - ORAL INTAKE REDUCED [None]
  - RENAL FAILURE ACUTE [None]
  - STOMATITIS [None]
